FAERS Safety Report 6428693-8 (Version None)
Quarter: 2009Q4

REPORT INFORMATION
  Report Type: 
  Country: None (occurrence: None)
  Receive Date: 20091104
  Receipt Date: 20091104
  Transmission Date: 20100525
  Serious: No
  Sender: FDA-Public Use
  Company Number: None

PATIENT
  Age: 54 Year
  Sex: Male
  Weight: 75.7 kg

DRUGS (1)
  1. LAMOTRIGINE [Suspect]
     Indication: PERSONALITY DISORDER
     Dosage: 200 MG HS PO
     Route: 048
     Dates: start: 20090506

REACTIONS (3)
  - AFFECTIVE DISORDER [None]
  - CONDITION AGGRAVATED [None]
  - PRODUCT SUBSTITUTION ISSUE [None]
